FAERS Safety Report 5123444-1 (Version None)
Quarter: 2006Q4

REPORT INFORMATION
  Report Type: 
  Country: None (occurrence: None)
  Receive Date: 20061005
  Receipt Date: 20060922
  Transmission Date: 20070319
  Serious: Yes (Other)
  Sender: FDA-Public Use
  Company Number: 2006116170

PATIENT
  Age: 29 Year
  Sex: Male

DRUGS (1)
  1. EPANUTIN [Suspect]
     Indication: EPILEPSY
     Dates: start: 19960101

REACTIONS (2)
  - ANTICONVULSANT DRUG LEVEL BELOW THERAPEUTIC [None]
  - EPILEPSY [None]
